FAERS Safety Report 23880050 (Version 2)
Quarter: 2024Q2

REPORT INFORMATION
  Report Type: Report from Study
  Country: US (occurrence: US)
  Receive Date: 20240521
  Receipt Date: 20240620
  Transmission Date: 20240716
  Serious: Yes (Other)
  Sender: FDA-Public Use
  Company Number: US-ABBVIE-5718768

PATIENT
  Sex: Female

DRUGS (2)
  1. HUMIRA [Suspect]
     Active Substance: ADALIMUMAB
     Indication: Rheumatoid arthritis
     Dosage: FORM STRENGTH 40 MILLIGRAMS?CITRATE FREE
     Route: 058
     Dates: start: 20240122, end: 20240517
  2. HUMIRA [Suspect]
     Active Substance: ADALIMUMAB
     Dosage: LAST ADMIN DATE JAN 2024?FORM STRENGTH 40 MILLIGRAMS?CITRATE FREE
     Route: 058
     Dates: start: 20240103

REACTIONS (6)
  - Coronary artery occlusion [Not Recovered/Not Resolved]
  - Feeding disorder [Recovered/Resolved]
  - Joint injury [Unknown]
  - Nausea [Recovered/Resolved]
  - Osteonecrosis [Unknown]
  - Tendon injury [Unknown]

NARRATIVE: CASE EVENT DATE: 20240101
